FAERS Safety Report 7774622-4 (Version None)
Quarter: 2011Q3

REPORT INFORMATION
  Report Type: 
  Country: None (occurrence: None)
  Receive Date: 20110923
  Receipt Date: 20110920
  Transmission Date: 20111222
  Serious: Yes (Other)
  Sender: FDA-Public Use
  Company Number: PT-ROCHE-802866

PATIENT
  Sex: Female
  Weight: 64 kg

DRUGS (4)
  1. OXALIPLATIN [Suspect]
     Indication: RECTAL CANCER
     Route: 042
     Dates: start: 20110801
  2. OXALIPLATIN [Suspect]
     Route: 042
     Dates: start: 20110822
  3. XELODA [Suspect]
     Route: 048
     Dates: start: 20110822, end: 20110904
  4. XELODA [Suspect]
     Indication: RECTAL CANCER
     Dosage: FILM COATED TABLET, FROM DAY 1 TO DAY 14
     Route: 048
     Dates: start: 20110711

REACTIONS (1)
  - BLOOD BILIRUBIN INCREASED [None]
